FAERS Safety Report 7209327-1 (Version None)
Quarter: 2011Q1

REPORT INFORMATION
  Report Type: 
  Country: None (occurrence: None)
  Receive Date: 20110104
  Receipt Date: 20101210
  Transmission Date: 20110831
  Serious: No
  Sender: FDA-Public Use
  Company Number: US-B.I. PHARMACEUTICALS,INC./RIDGEFIELD-2010-BP-14434BP

PATIENT
  Age: 80 Year
  Sex: Male

DRUGS (8)
  1. PRADAXA [Suspect]
     Route: 048
     Dates: start: 20101101
  2. ATENOLOL [Concomitant]
     Indication: CARDIAC DISORDER
     Dates: start: 20050101
  3. LOSARTAN [Concomitant]
     Indication: CARDIAC DISORDER
     Dates: start: 20060101
  4. FOLIC ACID [Concomitant]
     Indication: ABDOMINAL DISCOMFORT
     Dates: start: 20070101
  5. FAMOTIDINE [Concomitant]
     Indication: ABDOMINAL DISCOMFORT
     Dates: start: 20070101
  6. XYCAL [Concomitant]
     Indication: ABDOMINAL DISCOMFORT
     Dates: start: 20070101
  7. FENTANYL-100 [Concomitant]
     Indication: BACK PAIN
     Route: 061
     Dates: start: 20101101
  8. ACTONEL [Concomitant]
     Indication: OSTEOPOROSIS
     Dates: start: 20050101

REACTIONS (2)
  - GOUT [None]
  - RASH MACULAR [None]
